FAERS Safety Report 11665534 (Version 1)
Quarter: 2015Q4

REPORT INFORMATION
  Report Type: Spontaneous
  Country: US (occurrence: None)
  Receive Date: 20151026
  Receipt Date: 20151026
  Transmission Date: 20160304
  Serious: Yes (Hospitalization, Disabling)
  Sender: FDA-Public Use
  Company Number: None

PATIENT
  Age: 62 Year
  Weight: 106.14 kg

DRUGS (5)
  1. OCYCODONE/ACETAMINOPHEN [Suspect]
     Active Substance: ACETAMINOPHEN\OXYCODONE HYDROCHLORIDE
     Indication: ARTHRALGIA
     Dosage: 7.5/325
     Route: 048
     Dates: start: 20151013, end: 20151025
  2. LORAZEPAM. [Concomitant]
     Active Substance: LORAZEPAM
  3. AMINO ACIDS [Concomitant]
     Active Substance: AMINO ACIDS
  4. ROPINEROLE [Concomitant]
     Active Substance: ROPINIROLE
  5. VITAMINS AND MINERALS [Concomitant]

REACTIONS (3)
  - Drug dispensing error [None]
  - Respiratory rate increased [None]
  - Dyspnoea [None]

NARRATIVE: CASE EVENT DATE: 20151013
